FAERS Safety Report 26119927 (Version 1)
Quarter: 2025Q4

REPORT INFORMATION
  Report Type: Report from Study
  Country: EU (occurrence: EU)
  Receive Date: 20251204
  Receipt Date: 20251204
  Transmission Date: 20260118
  Serious: Yes (Other)
  Sender: TAKEDA
  Company Number: EU-TAKEDA-2025TUS101147

PATIENT
  Age: 38 Year
  Sex: Female

DRUGS (4)
  1. HUMAN IMMUNOGLOBULIN G\HYALURONIDASE RECOMBINANT HUMAN [Suspect]
     Active Substance: HUMAN IMMUNOGLOBULIN G\HYALURONIDASE (HUMAN RECOMBINANT)
     Indication: Immunodeficiency
     Dosage: UNK
  2. HUMAN IMMUNOGLOBULIN G\HYALURONIDASE RECOMBINANT HUMAN [Suspect]
     Active Substance: HUMAN IMMUNOGLOBULIN G\HYALURONIDASE (HUMAN RECOMBINANT)
     Indication: Immunodeficiency common variable
     Dosage: 400 MILLILITER, MONTHLY
  3. AMOXIL [Suspect]
     Active Substance: AMOXICILLIN
     Indication: Product used for unknown indication
     Dosage: UNK
  4. ZITHROMAX [Concomitant]
     Active Substance: AZITHROMYCIN DIHYDRATE
     Indication: Infection prophylaxis
     Dosage: UNK UNK, 3/WEEK

REACTIONS (7)
  - Drug hypersensitivity [Recovered/Resolved]
  - Ear infection [Recovering/Resolving]
  - Infection [Unknown]
  - Drug exposure before pregnancy [Not Recovered/Not Resolved]
  - Device infusion issue [Unknown]
  - Incorrect product administration duration [Unknown]
  - Expired product administered [Recovered/Resolved]

NARRATIVE: CASE EVENT DATE: 20251020
